FAERS Safety Report 7091001-6 (Version None)
Quarter: 2010Q4

REPORT INFORMATION
  Report Type: 
  Country: None (occurrence: None)
  Receive Date: 20101105
  Receipt Date: 20101105
  Transmission Date: 20110411
  Serious: Yes (Life-Threatening, Disabling)
  Sender: FDA-Public Use
  Company Number: None

PATIENT
  Age: 34 Year
  Sex: Female
  Weight: 75.2971 kg

DRUGS (1)
  1. FENTANYL-100 [Suspect]
     Indication: PAIN
     Dosage: 1 PATCH 72 HOURS TRANSDERMAL
     Route: 062
     Dates: start: 20101028, end: 20101101

REACTIONS (3)
  - CYANOSIS [None]
  - RESPIRATORY RATE DECREASED [None]
  - UNRESPONSIVE TO STIMULI [None]
